FAERS Safety Report 19192018 (Version 1)
Quarter: 2021Q2

REPORT INFORMATION
  Report Type: Spontaneous
  Country: CN (occurrence: CN)
  Receive Date: 20210429
  Receipt Date: 20210429
  Transmission Date: 20210717
  Serious: Yes (Other)
  Sender: FDA-Public Use
  Company Number: CN-ROCHE-2818509

PATIENT
  Age: 79 Year
  Sex: Male

DRUGS (14)
  1. DOXORUBICIN [Concomitant]
     Active Substance: DOXORUBICIN
     Indication: NON-HODGKIN^S LYMPHOMA
     Dosage: ON 02 APR 2019 AND 18 APR 2019, R?CHOP CHEMOTHERAPY REGIMEN FOR 2 CYCLES
  2. MABTHERA [Suspect]
     Active Substance: RITUXIMAB
     Indication: NON-HODGKIN^S LYMPHOMA
     Dosage: AS R?CHOP CHEMOTHERAPY REGIMEN FOR 2 CYCLES ON 18/APR/2019
     Route: 065
     Dates: start: 20190402
  3. CYCLOPHOSPHAMIDE. [Concomitant]
     Active Substance: CYCLOPHOSPHAMIDE
     Indication: DIFFUSE LARGE B-CELL LYMPHOMA
  4. DOXORUBICIN [Concomitant]
     Active Substance: DOXORUBICIN
     Indication: DIFFUSE LARGE B-CELL LYMPHOMA
  5. LENALIDOMIDE [Concomitant]
     Active Substance: LENALIDOMIDE
     Indication: DIFFUSE LARGE B-CELL LYMPHOMA
  6. PREDNISONE. [Concomitant]
     Active Substance: PREDNISONE
     Indication: DIFFUSE LARGE B-CELL LYMPHOMA
  7. IBRUTINIB [Concomitant]
     Active Substance: IBRUTINIB
     Indication: NON-HODGKIN^S LYMPHOMA
     Dosage: ON 14 MAY 2019, 12 JUN 2019 AND 11 JUL 2019, FOR 3 CYCLES, DOSE REDUCED BY 1/2
     Dates: end: 20190821
  8. PREDNISONE. [Concomitant]
     Active Substance: PREDNISONE
     Indication: NON-HODGKIN^S LYMPHOMA
     Dosage: ON 02 APR 2019 AND 18 APR 2019, R?CHOP CHEMOTHERAPY REGIMEN FOR 2 CYCLES
  9. IBRUTINIB [Concomitant]
     Active Substance: IBRUTINIB
     Indication: DIFFUSE LARGE B-CELL LYMPHOMA
  10. MABTHERA [Suspect]
     Active Substance: RITUXIMAB
     Indication: DIFFUSE LARGE B-CELL LYMPHOMA
     Dosage: ON 13 NOV 2019, R2 CHEMOTHERAPY REGIMEN FOR 2 CYCLES
     Route: 065
     Dates: start: 20190925
  11. VINCRISTINE [Concomitant]
     Active Substance: VINCRISTINE
     Indication: NON-HODGKIN^S LYMPHOMA
     Dosage: ON 02 APR 2019 AND 18 APR 2019, R?CHOP CHEMOTHERAPY REGIMEN FOR 2 CYCLES
  12. VINCRISTINE [Concomitant]
     Active Substance: VINCRISTINE
     Indication: DIFFUSE LARGE B-CELL LYMPHOMA
  13. CYCLOPHOSPHAMIDE. [Concomitant]
     Active Substance: CYCLOPHOSPHAMIDE
     Indication: NON-HODGKIN^S LYMPHOMA
     Dosage: ON 02 APR 2019 AND 18 APR 2019, R?CHOP CHEMOTHERAPY REGIMEN FOR 2 CYCLES
  14. LENALIDOMIDE [Concomitant]
     Active Substance: LENALIDOMIDE
     Indication: NON-HODGKIN^S LYMPHOMA
     Dosage: ON 25 SEP 2019 AND 13 NOV 2019, R2 CHEMOTHERAPY REGIMEN FOR 2 CYCLES

REACTIONS (1)
  - Subdural haemorrhage [Unknown]

NARRATIVE: CASE EVENT DATE: 20190821
